FAERS Safety Report 8218114-7 (Version None)
Quarter: 2012Q1

REPORT INFORMATION
  Report Type: 
  Country: None (occurrence: None)
  Receive Date: 20120316
  Receipt Date: 20120316
  Transmission Date: 20120608
  Serious: Yes (Hospitalization)
  Sender: FDA-Public Use
  Company Number: None

PATIENT
  Age: 96 Year
  Sex: Male
  Weight: 71.8 kg

DRUGS (2)
  1. ISOSORBIDE MONONITRATE [Suspect]
     Dosage: 60 MG EVERY DAY PO
     Route: 048
     Dates: end: 20110823
  2. LISINOPRIL [Suspect]
     Dosage: 20 MG EVERY DAY PO
     Route: 048
     Dates: end: 20110823

REACTIONS (1)
  - HYPOTENSION [None]
